FAERS Safety Report 14331812 (Version 2)
Quarter: 2018Q1

REPORT INFORMATION
  Report Type: Spontaneous
  Country: PK (occurrence: PK)
  Receive Date: 20171228
  Receipt Date: 20180121
  Transmission Date: 20180509
  Serious: Yes (Death)
  Sender: FDA-Public Use
  Company Number: PHHY2017PK195679

PATIENT
  Age: 70 Year
  Sex: Female
  Weight: 70 kg

DRUGS (1)
  1. REVOLADE [Suspect]
     Active Substance: ELTROMBOPAG
     Indication: THROMBOCYTOPENIA
     Dosage: 50 MG, QD
     Route: 048
     Dates: start: 20170405

REACTIONS (7)
  - Aphasia [Unknown]
  - Motor dysfunction [Unknown]
  - Fall [Unknown]
  - Loss of consciousness [Fatal]
  - Gait disturbance [Unknown]
  - Disorientation [Unknown]
  - Embolic stroke [Fatal]

NARRATIVE: CASE EVENT DATE: 20170405
